FAERS Safety Report 16017350 (Version 2)
Quarter: 2019Q2

REPORT INFORMATION
  Report Type: Spontaneous
  Country: AR (occurrence: AR)
  Receive Date: 20190228
  Receipt Date: 20190403
  Transmission Date: 20190711
  Serious: Yes (Other)
  Sender: FDA-Public Use
  Company Number: AR-PFIZER INC-2019087179

PATIENT
  Age: 69 Year
  Sex: Male

DRUGS (1)
  1. SUTENT [Suspect]
     Active Substance: SUNITINIB MALATE
     Indication: METASTATIC RENAL CELL CARCINOMA
     Dosage: UNK
     Dates: start: 20190122

REACTIONS (13)
  - Syncope [Unknown]
  - Blood pressure systolic increased [Unknown]
  - Skin irritation [Recovered/Resolved]
  - Ageusia [Unknown]
  - Dehydration [Recovering/Resolving]
  - Platelet count decreased [Unknown]
  - Insomnia [Unknown]
  - Urine analysis abnormal [Unknown]
  - Skin burning sensation [Unknown]
  - Hypertension [Unknown]
  - Diabetes mellitus inadequate control [Unknown]
  - Stomatitis [Unknown]
  - Malaise [Unknown]

NARRATIVE: CASE EVENT DATE: 2019
